FAERS Safety Report 5669993-9 (Version None)
Quarter: 2008Q1

REPORT INFORMATION
  Report Type: 
  Country: None (occurrence: None)
  Receive Date: 20080317
  Receipt Date: 20080314
  Transmission Date: 20080703
  Serious: Yes (Other)
  Sender: FDA-Public Use
  Company Number: US-BOEHRINGER INGELHEIM GMBH, GERMANY-2008-BP-03910RO

PATIENT

DRUGS (4)
  1. LITHIUM CARBONATE CAPSULES USP, 150 MG [Suspect]
  2. WELLBUTRIN XL [Suspect]
     Route: 048
  3. PAXIL [Suspect]
     Route: 048
  4. RISPERIDONE [Suspect]

REACTIONS (1)
  - HEPATOTOXICITY [None]
